FAERS Safety Report 5348935-X (Version None)
Quarter: 2007Q2

REPORT INFORMATION
  Report Type: 
  Country: None (occurrence: None)
  Receive Date: 20070607
  Receipt Date: 20070222
  Transmission Date: 20071010
  Serious: Yes (Death, Life-Threatening, Hospitalization)
  Sender: FDA-Public Use
  Company Number: BE-JNJFOC-20060502698

PATIENT
  Age: 6 Decade
  Sex: Male
  Weight: 66 kg

DRUGS (16)
  1. TMC114 [Suspect]
     Route: 048
  2. TMC114 [Suspect]
     Indication: HIV INFECTION
     Route: 048
  3. RITONAVIR [Suspect]
     Indication: HIV INFECTION
     Route: 048
  4. TENOFOVIR [Suspect]
     Indication: HIV INFECTION
     Route: 048
  5. EUSAPRIM FORT [Suspect]
     Indication: DRUG USE FOR UNKNOWN INDICATION
     Dosage: TABLET 800-160 MG
     Route: 048
  6. ENFUVIRTIDE [Concomitant]
     Indication: HIV INFECTION
     Route: 058
  7. COMBIVIR [Concomitant]
     Indication: HIV INFECTION
     Route: 048
  8. ATAZANAVIR SULFATE [Concomitant]
     Indication: HIV INFECTION
     Route: 048
  9. DAKTARIN [Concomitant]
     Route: 048
  10. INSULACTRAPID [Concomitant]
     Dosage: PENFILL 3ML 14-14-13 IU
     Route: 058
  11. INSUL INSULATARD [Concomitant]
     Dosage: PENFILL 3ML
     Route: 058
  12. CORUNO RETARD [Concomitant]
     Dosage: RETARD- TABLET
     Route: 048
  13. PERINDOPRIL ERBUMINE [Concomitant]
     Dosage: 1 TABLET = 4MG
     Route: 048
  14. DUOVENT [Concomitant]
     Dosage: PUFF 200 DOS
     Route: 055
  15. SERETIDE [Concomitant]
     Route: 055
  16. TEARS NATURALE [Concomitant]
     Dosage: FL COLI 15 ML
     Route: 047

REACTIONS (1)
  - RENAL FAILURE ACUTE [None]
